FAERS Safety Report 14369355 (Version 1)
Quarter: 2018Q1

REPORT INFORMATION
  Report Type: Spontaneous
  Country: CN (occurrence: CN)
  Receive Date: 20180109
  Receipt Date: 20180109
  Transmission Date: 20180509
  Serious: Yes (Life-Threatening)
  Sender: FDA-Public Use
  Company Number: CN-BAXTER-2018BAX000414

PATIENT
  Age: 79 Year
  Sex: Male
  Weight: 46 kg

DRUGS (1)
  1. SODIUM CHLORIDE PHYSIOLOGICAL SOLUTION [Suspect]
     Active Substance: SODIUM CHLORIDE
     Indication: MEDICATION DILUTION
     Route: 041
     Dates: start: 20171020, end: 20171020

REACTIONS (3)
  - Hypertension [Recovering/Resolving]
  - Hypersensitivity [Recovering/Resolving]
  - Palpitations [Recovering/Resolving]

NARRATIVE: CASE EVENT DATE: 20171020
